FAERS Safety Report 19538383 (Version 1)
Quarter: 2021Q3

REPORT INFORMATION
  Report Type: Spontaneous
  Country: US (occurrence: US)
  Receive Date: 20210714
  Receipt Date: 20210714
  Transmission Date: 20211014
  Serious: Yes (Death)
  Sender: FDA-Public Use
  Company Number: None

PATIENT
  Age: 57 Year
  Sex: Female
  Weight: 44 kg

DRUGS (18)
  1. PANTOPRAZOLE [Concomitant]
     Active Substance: PANTOPRAZOLE
  2. PROCHLORPERAZINE. [Concomitant]
     Active Substance: PROCHLORPERAZINE
  3. OLANZAPINE. [Concomitant]
     Active Substance: OLANZAPINE
  4. SENNA [Concomitant]
     Active Substance: SENNA LEAF\SENNOSIDES\SENNOSIDES A AND B
  5. VITAMIN D2 [Concomitant]
     Active Substance: ERGOCALCIFEROL
  6. ROBAXIN [Concomitant]
     Active Substance: METHOCARBAMOL
  7. MAGIC MOUTHWASH [Concomitant]
     Active Substance: DIPHENHYDRAMINE HYDROCHLORIDE\LIDOCAINE HYDROCHLORIDE\NYSTATIN
  8. BRAFTOVI [Suspect]
     Active Substance: ENCORAFENIB
     Indication: NEOPLASM MALIGNANT
     Route: 048
     Dates: start: 20210310, end: 20210703
  9. FENTANYL. [Concomitant]
     Active Substance: FENTANYL
  10. DICYCLOMINE [Concomitant]
     Active Substance: DICYCLOMINE HYDROCHLORIDE
  11. HYDROMORPHONE [Concomitant]
     Active Substance: HYDROMORPHONE
  12. MUCINEX [Concomitant]
     Active Substance: GUAIFENESIN
  13. STOOL SOFTENER (DOCUSATE) [Concomitant]
     Active Substance: DOCUSATE
  14. HYDROXYZINE [Concomitant]
     Active Substance: HYDROXYZINE HYDROCHLORIDE
  15. MIDODRINE [Concomitant]
     Active Substance: MIDODRINE
  16. DECADRON [Concomitant]
     Active Substance: DEXAMETHASONE
  17. LASIX [Concomitant]
     Active Substance: FUROSEMIDE
  18. ZINC. [Concomitant]
     Active Substance: ZINC

REACTIONS (1)
  - Death [None]

NARRATIVE: CASE EVENT DATE: 20210703
